FAERS Safety Report 9277146 (Version 1)
Quarter: 2013Q2

REPORT INFORMATION
  Report Type: Spontaneous
  Country: FR (occurrence: FR)
  Receive Date: 20130508
  Receipt Date: 20130508
  Transmission Date: 20140414
  Serious: Yes (Other)
  Sender: FDA-Public Use
  Company Number: FR-MYLANLABS-2013S1009387

PATIENT
  Age: 84 Year
  Sex: Female

DRUGS (2)
  1. ISOPTIN [Suspect]
     Route: 065
  2. VERAPAMIL [Suspect]
     Route: 065

REACTIONS (2)
  - Arrhythmia [Recovered/Resolved]
  - Product substitution issue [Recovered/Resolved]
